FAERS Safety Report 12376009 (Version 1)
Quarter: 2016Q2

REPORT INFORMATION
  Report Type: Spontaneous
  Country: US (occurrence: None)
  Receive Date: 20160516
  Receipt Date: 20160516
  Transmission Date: 20160815
  Serious: No
  Sender: FDA-Public Use
  Company Number: None

PATIENT
  Age: 42 Year
  Sex: Female
  Weight: 97.52 kg

DRUGS (7)
  1. TRILEPTAL [Concomitant]
     Active Substance: OXCARBAZEPINE
  2. XANAX [Concomitant]
     Active Substance: ALPRAZOLAM
  3. VITAMIN B12 [Concomitant]
     Active Substance: CYANOCOBALAMIN
  4. FLUCONAZOLE TABLETS UPS, 150 MG GLENMARK GENERICS INC. [Suspect]
     Active Substance: FLUCONAZOLE
     Indication: VULVOVAGINAL CANDIDIASIS
     Dosage: 1 TABLET(S) AS NEEDED TAKEN BY MOUTH
     Route: 048
     Dates: start: 20160514
  5. LAMICTAL [Concomitant]
     Active Substance: LAMOTRIGINE
  6. MARLISSA (BIRTH CONTROL) [Concomitant]
  7. ROZEREM [Concomitant]
     Active Substance: RAMELTEON

REACTIONS (3)
  - Rash [None]
  - Burning sensation [None]
  - Erythema [None]

NARRATIVE: CASE EVENT DATE: 20160514
